FAERS Safety Report 8557640-8 (Version None)
Quarter: 2012Q3

REPORT INFORMATION
  Report Type: 
  Country: None (occurrence: None)
  Receive Date: 20120801
  Receipt Date: 20120724
  Transmission Date: 20120928
  Serious: Yes (Hospitalization)
  Sender: FDA-Public Use
  Company Number: US-ALEXION-A201201405

PATIENT
  Sex: Female

DRUGS (2)
  1. SOLIRIS [Suspect]
     Dosage: 600 MG, QW X 4 WEEKS
     Route: 042
     Dates: start: 20090316
  2. SOLIRIS [Suspect]
     Indication: PAROXYSMAL NOCTURNAL HAEMOGLOBINURIA
     Dosage: 900 MG, Q2W
     Route: 042
     Dates: start: 20110816

REACTIONS (12)
  - DIABETES MELLITUS [None]
  - ATRIAL FIBRILLATION [None]
  - CARDIAC ENZYMES INCREASED [None]
  - PORTAL VEIN THROMBOSIS [None]
  - CHEST PAIN [None]
  - DYSPNOEA [None]
  - BRADYCARDIA [None]
  - SYNCOPE [None]
  - DEPRESSION [None]
  - GASTROOESOPHAGEAL REFLUX DISEASE [None]
  - CARDIAC FAILURE CONGESTIVE [None]
  - HYPERTENSION [None]
